FAERS Safety Report 23329396 (Version 1)
Quarter: 2023Q4

REPORT INFORMATION
  Report Type: Spontaneous
  Country: US (occurrence: US)
  Receive Date: 20231222
  Receipt Date: 20231222
  Transmission Date: 20240110
  Serious: Yes (Death)
  Sender: FDA-Public Use
  Company Number: ENDB23-04648

PATIENT
  Age: 77 Year
  Sex: Male

DRUGS (5)
  1. AVEED [Suspect]
     Active Substance: TESTOSTERONE UNDECANOATE
     Indication: Testicular failure
     Dosage: 3 MILLILITER, ONCE EVERY 10WK
     Route: 030
     Dates: start: 202211
  2. MEKINIST [Concomitant]
     Active Substance: TRAMETINIB DIMETHYL SULFOXIDE
     Indication: Lung neoplasm malignant
     Dosage: UNK UNKNOWN, UNKNOWN
     Route: 065
  3. MEKINIST [Concomitant]
     Active Substance: TRAMETINIB DIMETHYL SULFOXIDE
     Indication: Bronchial carcinoma
  4. TAFINLAR [Concomitant]
     Active Substance: DABRAFENIB MESYLATE
     Indication: Lung neoplasm malignant
     Dosage: UNK UNKNOWN, UNKNOWN
     Route: 065
  5. TAFINLAR [Concomitant]
     Active Substance: DABRAFENIB MESYLATE
     Indication: Bronchial carcinoma

REACTIONS (1)
  - Death [Fatal]

NARRATIVE: CASE EVENT DATE: 20231212
